FAERS Safety Report 8539995-3 (Version None)
Quarter: 2012Q3

REPORT INFORMATION
  Report Type: 
  Country: None (occurrence: None)
  Receive Date: 20120726
  Receipt Date: 20120712
  Transmission Date: 20120928
  Serious: No
  Sender: FDA-Public Use
  Company Number: US-ASTRAZENECA-2012SE48350

PATIENT
  Sex: Female

DRUGS (6)
  1. METOPROLOL SUCCINATE [Suspect]
     Route: 048
  2. METOPROLOL TARTRATE [Suspect]
     Route: 048
  3. METOPROLOL SUCCINATE [Suspect]
     Route: 048
  4. METOPROLOL SUCCINATE [Suspect]
     Route: 048
  5. METOPROLOL SUCCINATE [Suspect]
     Route: 048
  6. METOPROLOL SUCCINATE [Suspect]
     Route: 048

REACTIONS (2)
  - HEART RATE IRREGULAR [None]
  - HEART RATE INCREASED [None]
